FAERS Safety Report 10160554 (Version 4)
Quarter: 2015Q1

REPORT INFORMATION
  Report Type: Report from Study
  Country: JP (occurrence: JP)
  Receive Date: 20140508
  Receipt Date: 20150326
  Transmission Date: 20150720
  Serious: Yes (Hospitalization)
  Sender: FDA-Public Use
  Company Number: JP-DSJP-DSJ-2014-106588AA

PATIENT

DRUGS (5)
  1. CRESTOR [Concomitant]
     Active Substance: ROSUVASTATIN CALCIUM
     Indication: PROPHYLAXIS
     Dosage: UNK, TID AFTER BREAKFAST, LUNCH, DINNER
     Route: 048
     Dates: start: 20140402
  2. OLMETEC TABLETS 20MG [Suspect]
     Active Substance: OLMESARTAN MEDOXOMIL
     Indication: HYPERTENSION
     Dosage: 20 MG, BID MORNING AND EVENING AFTER MEALS
     Route: 048
  3. AMLODIPINE                         /00972402/ [Concomitant]
     Active Substance: AMLODIPINE BESYLATE
     Indication: HYPERTENSION
     Dosage: UNK, BID MORNING AND EVENING AFTER MEALS
     Route: 048
     Dates: start: 20140419
  4. CS-747S [Suspect]
     Active Substance: PRASUGREL
     Indication: ISCHAEMIC STROKE
     Dosage: 2.5 MG, QD
     Route: 048
     Dates: start: 20130606, end: 20140424
  5. PLAVIX                             /01220702/ [Concomitant]
     Indication: PRODUCT USED FOR UNKNOWN INDICATION
     Dosage: UNK, BID MORNING AND EVENING AFTER MEALS
     Route: 048
     Dates: start: 20140425

REACTIONS (1)
  - Aortic aneurysm [Recovered/Resolved]

NARRATIVE: CASE EVENT DATE: 20140411
